FAERS Safety Report 8252405-9 (Version None)
Quarter: 2012Q2

REPORT INFORMATION
  Report Type: 
  Country: None (occurrence: None)
  Receive Date: 20120402
  Receipt Date: 20110627
  Transmission Date: 20120825
  Serious: No
  Sender: FDA-Public Use
  Company Number: US-ABBOTT-11P-163-0834543-00

PATIENT
  Sex: Male
  Weight: 69.462 kg

DRUGS (3)
  1. ANDROGEL [Suspect]
     Indication: BLOOD TESTOSTERONE DECREASED
     Dosage: 4 PUMPS 1 IN 1 D
     Route: 062
     Dates: start: 20110401
  2. UNKNOWN STATINS [Concomitant]
     Indication: BLOOD CHOLESTEROL INCREASED
     Route: 048
  3. UNKNOWN BLOOD PRESSURE MEDICATION [Concomitant]
     Indication: HYPERTENSION
     Route: 048

REACTIONS (2)
  - INCORRECT DOSE ADMINISTERED [None]
  - APPLICATION SITE PRURITUS [None]
